FAERS Safety Report 10154115 (Version 2)
Quarter: 2014Q2

REPORT INFORMATION
  Report Type: Spontaneous
  Country: JP (occurrence: None)
  Receive Date: 20140502
  Receipt Date: 20140603
  Transmission Date: 20141212
  Serious: Yes (Other)
  Sender: FDA-Public Use
  Company Number: ABR_01612_2014

PATIENT
  Age: 62 Year
  Sex: Male

DRUGS (1)
  1. GLIADEL [Suspect]
     Indication: GLIOMA
     Dosage: (4 DF 1X INTRACEREBRAL)
     Route: 016
     Dates: start: 20140416

REACTIONS (3)
  - Aphasia [None]
  - Implant site oedema [None]
  - Brain oedema [None]
